FAERS Safety Report 12511196 (Version 1)
Quarter: 2016Q2

REPORT INFORMATION
  Report Type: Spontaneous
  Country: ID (occurrence: ID)
  Receive Date: 20160629
  Receipt Date: 20160629
  Transmission Date: 20160815
  Serious: Yes (Life-Threatening, Hospitalization)
  Sender: FDA-Public Use
  Company Number: ID-ASTRAZENECA-2016SE70284

PATIENT
  Sex: Male

DRUGS (11)
  1. CONCOR (BISOPROLOL) [Concomitant]
     Route: 048
  2. ASCARDIA [Concomitant]
     Route: 048
  3. BRILINTA [Suspect]
     Active Substance: TICAGRELOR
     Indication: ACUTE CORONARY SYNDROME
     Route: 048
  4. VALSARTAN. [Concomitant]
     Active Substance: VALSARTAN
     Route: 048
  5. AMLODIPIN [Concomitant]
     Active Substance: AMLODIPINE BESYLATE
     Route: 048
  6. SIMVASTATIN. [Concomitant]
     Active Substance: SIMVASTATIN
     Route: 048
  7. NITROKAF (GLYCERYL TRINITRATE) [Concomitant]
     Route: 048
  8. ISDN  (ISOSORBIDE DINITRATE) [Concomitant]
     Active Substance: ISOSORBIDE DINITRATE
     Dosage: AS REQUIRED
     Route: 048
  9. ALLOPURINOL. [Concomitant]
     Active Substance: ALLOPURINOL
     Route: 048
  10. PATIENT REPORTED HE HAD SOME INJECTIONS IN ABDOMEN (THE DRUG NAME W... [Concomitant]
  11. ATORVASTATIN [Concomitant]
     Active Substance: ATORVASTATIN
     Route: 048

REACTIONS (4)
  - Nausea [Unknown]
  - Chest pain [Unknown]
  - Cold sweat [Unknown]
  - Acute myocardial infarction [Recovered/Resolved with Sequelae]
